FAERS Safety Report 15720566 (Version 4)
Quarter: 2019Q1

REPORT INFORMATION
  Report Type: Spontaneous
  Country: DE (occurrence: DE)
  Receive Date: 20181213
  Receipt Date: 20190301
  Transmission Date: 20190417
  Serious: Yes (Other)
  Sender: FDA-Public Use
  Company Number: DE-BRISTOL-MYERS SQUIBB COMPANY-BMS-2018-114927

PATIENT
  Age: 53 Year
  Sex: Male
  Weight: 61 kg

DRUGS (2)
  1. OPDIVO [Suspect]
     Active Substance: NIVOLUMAB
     Indication: PRODUCT USED FOR UNKNOWN INDICATION
     Dosage: UNK
     Route: 065
     Dates: end: 20180704
  2. OPDIVO [Suspect]
     Active Substance: NIVOLUMAB
     Indication: NON-SMALL CELL LUNG CANCER RECURRENT
     Dosage: 240 MG, UNK
     Route: 042
     Dates: start: 20180130, end: 20180704

REACTIONS (2)
  - Anaphylactic shock [Recovered/Resolved]
  - Aortic valve disease [Unknown]

NARRATIVE: CASE EVENT DATE: 20180130
